FAERS Safety Report 9782519 (Version 2)
Quarter: 2014Q1

REPORT INFORMATION
  Report Type: Report from Study
  Country: NL (occurrence: NL)
  Receive Date: 20131226
  Receipt Date: 20140317
  Transmission Date: 20141002
  Serious: Yes (Hospitalization, Other)
  Sender: FDA-Public Use
  Company Number: PHHY2013NL151842

PATIENT
  Age: 56 Year
  Sex: Female

DRUGS (3)
  1. ACLASTA [Suspect]
     Indication: OSTEOPOROSIS
     Dosage: 5 MG PER 100 ML PER 52 WEEKS
     Route: 042
     Dates: start: 20121219
  2. ACLASTA [Suspect]
     Dosage: 5 MG PER 100 ML PER 52 WEEKS
     Route: 042
     Dates: start: 20131220
  3. PARACETAMOL [Concomitant]
     Dosage: 500 MG, 2 DD WHEN NECESSARY 3 DD

REACTIONS (2)
  - Breast cancer [Unknown]
  - Headache [Unknown]
